FAERS Safety Report 25235114 (Version 1)
Quarter: 2025Q2

REPORT INFORMATION
  Report Type: Spontaneous
  Country: US (occurrence: None)
  Receive Date: 20250423
  Receipt Date: 20250423
  Transmission Date: 20250716
  Serious: Yes (Hospitalization)
  Sender: FDA-CTU
  Company Number: None

PATIENT
  Age: 64 Year
  Sex: Male

DRUGS (1)
  1. KEVZARA [Suspect]
     Active Substance: SARILUMAB
     Indication: Polymyalgia rheumatica
     Dosage: FREQUENCY : EVERY OTHER WEEK;?
     Route: 058
     Dates: start: 20250415, end: 20250418

REACTIONS (7)
  - Headache [None]
  - Chest pain [None]
  - Dyspnoea [None]
  - Vomiting [None]
  - Dizziness [None]
  - Abdominal pain [None]
  - Micturition disorder [None]

NARRATIVE: CASE EVENT DATE: 20250418
